FAERS Safety Report 4624845-8 (Version None)
Quarter: 2005Q1

REPORT INFORMATION
  Report Type: 
  Country: None (occurrence: None)
  Receive Date: 20050325
  Receipt Date: 20050105
  Transmission Date: 20050727
  Serious: No
  Sender: FDA-Public Use
  Company Number: USA050187539

PATIENT
  Age: 69 Year
  Sex: Female

DRUGS (1)
  1. FORTEO [Suspect]
     Indication: OSTEOPOROSIS
     Dates: start: 20040601

REACTIONS (6)
  - ARTHRITIS [None]
  - BONE DISORDER [None]
  - FEELING ABNORMAL [None]
  - GENERAL SYMPTOM [None]
  - JAW DISORDER [None]
  - NERVE INJURY [None]
